FAERS Safety Report 7752727-1 (Version None)
Quarter: 2011Q3

REPORT INFORMATION
  Report Type: 
  Country: None (occurrence: None)
  Receive Date: 20110915
  Receipt Date: 20110909
  Transmission Date: 20111222
  Serious: Yes (Hospitalization)
  Sender: FDA-Public Use
  Company Number: JP-SANOFI-AVENTIS-2011SA059126

PATIENT
  Age: 69 Year
  Sex: Male
  Weight: 65.4 kg

DRUGS (20)
  1. LEVOFLOXACIN [Concomitant]
     Route: 048
     Dates: start: 20110831, end: 20110906
  2. SITAGLIPTIN PHOSPHATE [Concomitant]
     Route: 048
     Dates: start: 20100101
  3. DIGOXIN [Concomitant]
     Route: 048
     Dates: start: 20080101
  4. CABAZITAXEL [Suspect]
     Indication: PROSTATE CANCER
     Route: 042
     Dates: start: 20110802, end: 20110802
  5. CABAZITAXEL [Suspect]
     Route: 042
     Dates: start: 20110823, end: 20110823
  6. AMBROXOL HYDROCHLORIDE [Concomitant]
     Route: 048
     Dates: start: 20070101
  7. DEXAMETHASONE [Concomitant]
     Dates: start: 20110802, end: 20110823
  8. BIOFERMIN [Concomitant]
     Route: 048
     Dates: start: 20110831, end: 20110906
  9. SODIUM BICARBONATE [Concomitant]
     Route: 048
     Dates: start: 20110815
  10. FAMOTIDINE [Concomitant]
     Route: 048
     Dates: start: 20110210
  11. CHLORPHENIRAMINE MALEATE [Concomitant]
     Dates: start: 20110802, end: 20110823
  12. PREDNISOLONE [Suspect]
     Indication: PROSTATE CANCER
     Dates: start: 20110802, end: 20110909
  13. TIOTROPIUM BROMIDE [Concomitant]
     Route: 048
     Dates: start: 20070101
  14. URSODIOL [Concomitant]
     Route: 048
     Dates: start: 20050101
  15. OXETHAZINE [Concomitant]
     Route: 048
     Dates: start: 20050101
  16. RANITIDINE [Concomitant]
     Dates: start: 20110802, end: 20110823
  17. AZOSEMIDE [Concomitant]
     Route: 048
     Dates: start: 20090401
  18. GLYCERIN [Concomitant]
     Dates: start: 20110815
  19. KETOPROFEN [Concomitant]
     Dates: start: 20110807
  20. MAGNESIUM OXIDE [Concomitant]
     Route: 048
     Dates: start: 20110803

REACTIONS (2)
  - DEEP VEIN THROMBOSIS [None]
  - PULMONARY EMBOLISM [None]
